FAERS Safety Report 12925640 (Version 1)
Quarter: 2016Q4

REPORT INFORMATION
  Report Type: Spontaneous
  Country: BR (occurrence: BR)
  Receive Date: 20161109
  Receipt Date: 20161109
  Transmission Date: 20170207
  Serious: Yes (Other)
  Sender: FDA-Public Use
  Company Number: PHHY2012BR065468

PATIENT
  Age: 37 Year
  Sex: Female

DRUGS (3)
  1. BETAMETASONA [Concomitant]
     Indication: PRODUCT USED FOR UNKNOWN INDICATION
     Route: 065
  2. LOSARTAN. [Suspect]
     Active Substance: LOSARTAN
     Indication: HYPERTENSION
     Dosage: 50 MG, UNK
     Route: 065
  3. METHYLDOPA. [Concomitant]
     Active Substance: METHYLDOPA

REACTIONS (4)
  - Umbilical malformation [Unknown]
  - Oligohydramnios [Unknown]
  - Exposure during pregnancy [Unknown]
  - Premature delivery [Unknown]
